FAERS Safety Report 7464206-X (Version None)
Quarter: 2011Q2

REPORT INFORMATION
  Report Type: 
  Country: None (occurrence: None)
  Receive Date: 20110506
  Receipt Date: 20110427
  Transmission Date: 20111010
  Serious: Yes (Other)
  Sender: FDA-Public Use
  Company Number: US-ASTRAZENECA-2011SE25345

PATIENT
  Age: 79 Year
  Sex: Female

DRUGS (3)
  1. PRILOSEC OTC [Suspect]
     Route: 048
  2. CRESTOR [Concomitant]
  3. NEXIUM [Suspect]
     Route: 048

REACTIONS (2)
  - HERNIA HIATUS REPAIR [None]
  - DRUG EFFECT DECREASED [None]
